FAERS Safety Report 20235526 (Version 14)
Quarter: 2022Q4

REPORT INFORMATION
  Report Type: Report from Study
  Country: CN (occurrence: None)
  Receive Date: 20211228
  Receipt Date: 20221004
  Transmission Date: 20230113
  Serious: Yes (Hospitalization)
  Sender: FDA-Public Use
  Company Number: CN-ROCHE-2909711

PATIENT
  Age: 58 Year
  Sex: Male
  Weight: 57.5 kg

DRUGS (62)
  1. TIRAGOLUMAB [Suspect]
     Active Substance: TIRAGOLUMAB
     Indication: Oesophageal squamous cell carcinoma metastatic
     Dosage: DOSE LAST STUDY DRUG ADMIN PRIOR SAE ON 20/AUG/2021
     Route: 042
     Dates: start: 20210709
  2. ATEZOLIZUMAB [Suspect]
     Active Substance: ATEZOLIZUMAB
     Indication: Oesophageal squamous cell carcinoma metastatic
     Dosage: START DATE OF MOST RECENT DOSE OF STUDY DRUG PRIOR TO SAE 20/AUG/2021
     Route: 041
     Dates: start: 20210709
  3. PACLITAXEL [Suspect]
     Active Substance: PACLITAXEL
     Indication: Oesophageal squamous cell carcinoma metastatic
     Dosage: MOST RECENT DOSE PRIOR TO SAE RECEIVED IS 292 MG ON 09/JUL/2021
     Route: 042
     Dates: start: 20210709
  4. CISPLATIN [Suspect]
     Active Substance: CISPLATIN
     Indication: Oesophageal squamous cell carcinoma metastatic
     Dosage: MOST RECENT DOSE PRIOR TO SAE RECEIVED IS 99 MG ON 01/AUG/2021
     Route: 042
     Dates: start: 20210709
  5. MYCOPHENOLATE MOFETIL [Concomitant]
     Active Substance: MYCOPHENOLATE MOFETIL
     Indication: Immune-mediated myositis
     Dosage: DISPERSIBLE TABLETS
     Route: 048
     Dates: start: 20210924, end: 20210927
  6. ACETAMINOPHEN\OXYCODONE HYDROCHLORIDE [Concomitant]
     Active Substance: ACETAMINOPHEN\OXYCODONE HYDROCHLORIDE
     Indication: Pain
     Route: 048
     Dates: start: 20210915, end: 20210915
  7. ACETAMINOPHEN\OXYCODONE HYDROCHLORIDE [Concomitant]
     Active Substance: ACETAMINOPHEN\OXYCODONE HYDROCHLORIDE
     Dosage: 1 TABLET
     Route: 048
     Dates: start: 20210922, end: 20210923
  8. ACETAMINOPHEN\OXYCODONE HYDROCHLORIDE [Concomitant]
     Active Substance: ACETAMINOPHEN\OXYCODONE HYDROCHLORIDE
     Route: 048
     Dates: start: 20210927, end: 20211122
  9. EPOETIN BETA [Concomitant]
     Active Substance: ERYTHROPOIETIN
     Dates: start: 20210820, end: 20210820
  10. METRONIDAZOLE [Concomitant]
     Active Substance: METRONIDAZOLE
     Dates: start: 20210820, end: 20210908
  11. CEPHALEXIN [Concomitant]
     Active Substance: CEPHALEXIN
     Dates: start: 20210820, end: 20210827
  12. SHENG XUE BAO HE JI [Concomitant]
     Indication: Anaemia
     Route: 048
     Dates: start: 20210831, end: 20210908
  13. ERYTHROPOIETIN [Concomitant]
     Active Substance: ERYTHROPOIETIN
     Indication: Anaemia
     Dosage: 3000 UG
     Route: 042
     Dates: start: 20210831, end: 20210906
  14. DONKEY-HIDE GELATIN [Concomitant]
     Indication: Anaemia
     Route: 048
     Dates: start: 20210903, end: 20210930
  15. IRON SUCROSE [Concomitant]
     Active Substance: IRON SUCROSE
     Indication: Anaemia
     Route: 042
     Dates: start: 20210903, end: 20210906
  16. SODIUM CHLORIDE [Concomitant]
     Active Substance: SODIUM CHLORIDE
     Dates: start: 20210909, end: 20210927
  17. SODIUM CHLORIDE [Concomitant]
     Active Substance: SODIUM CHLORIDE
     Dosage: GIVEN FOR PROPHYLAXIS; YES
     Dates: start: 20210730, end: 20210731
  18. POTASSIUM CHLORIDE [Concomitant]
     Active Substance: POTASSIUM CHLORIDE
     Dates: start: 20210909, end: 20210909
  19. POTASSIUM CHLORIDE [Concomitant]
     Active Substance: POTASSIUM CHLORIDE
     Dates: start: 20210730, end: 20210731
  20. POTASSIUM CHLORIDE [Concomitant]
     Active Substance: POTASSIUM CHLORIDE
     Dates: start: 20211008, end: 20211008
  21. POTASSIUM CHLORIDE [Concomitant]
     Active Substance: POTASSIUM CHLORIDE
     Dates: start: 20211017, end: 20211017
  22. POTASSIUM CHLORIDE [Concomitant]
     Active Substance: POTASSIUM CHLORIDE
     Route: 042
     Dates: start: 20211009, end: 20211016
  23. ESOMEPRAZOLE SODIUM [Concomitant]
     Active Substance: ESOMEPRAZOLE SODIUM
     Dates: start: 20210910, end: 20210927
  24. ESOMEPRAZOLE SODIUM [Concomitant]
     Active Substance: ESOMEPRAZOLE SODIUM
     Dates: start: 20211008, end: 20211013
  25. ESOMEPRAZOLE SODIUM [Concomitant]
     Active Substance: ESOMEPRAZOLE SODIUM
     Dates: start: 20210730, end: 20210731
  26. MAGNESIUM ISOGLYCYRRHIZINATE [Concomitant]
     Active Substance: MAGNESIUM ISOGLYCYRRHIZINATE
     Dates: start: 20210910, end: 20210926
  27. SULFAMETHOXAZOLE [Concomitant]
     Active Substance: SULFAMETHOXAZOLE
     Dates: start: 20210916, end: 20210930
  28. CEFOXITIN SODIUM [Concomitant]
     Active Substance: CEFOXITIN SODIUM
     Indication: Bacterial infection
     Dates: start: 20211011, end: 20211012
  29. BROMHEXINE HYDROCHLORIDE [Concomitant]
     Active Substance: BROMHEXINE HYDROCHLORIDE
     Indication: Productive cough
     Dates: start: 20211013, end: 20211013
  30. PULMICORT RESPULES [Concomitant]
     Active Substance: BUDESONIDE
     Indication: Productive cough
     Dates: start: 20211013, end: 20211013
  31. PROTEIN HYDROLYSATE [Concomitant]
     Active Substance: PROTEIN HYDROLYSATE
     Indication: Nutritional supplementation
     Route: 048
     Dates: start: 20211014, end: 20211014
  32. NEXIUM [Concomitant]
     Active Substance: ESOMEPRAZOLE MAGNESIUM
     Dates: start: 20210927, end: 20210930
  33. FUROSEMIDE [Concomitant]
     Active Substance: FUROSEMIDE
     Indication: Polyuria
     Dates: start: 20210913, end: 20210926
  34. RECOMBINANT HUMAN ERYTHROPOIETIN INJECTION (CHO CELL) (UNK INGREDIENTS [Concomitant]
     Indication: Anaemia
     Route: 062
     Dates: start: 20210820, end: 20210820
  35. RECOMBINANT HUMAN ERYTHROPOIETIN INJECTION (CHO CELL) (UNK INGREDIENTS [Concomitant]
     Route: 062
     Dates: start: 20210913, end: 20210927
  36. RECOMBINANT HUMAN ERYTHROPOIETIN INJECTION (CHO CELL) (UNK INGREDIENTS [Concomitant]
     Dates: start: 20210820, end: 20210908
  37. VITAMINS [Concomitant]
     Active Substance: VITAMINS
     Dates: start: 20210909
  38. OMEPRAZOLE [Concomitant]
     Active Substance: OMEPRAZOLE
     Indication: Decreased appetite
     Dosage: ENTERIC-COATED CAPSULES
     Route: 048
     Dates: start: 20210629
  39. KANG FU XIN YE [Concomitant]
     Dates: start: 20210629
  40. COMPOUND ELECTROLYTES AND GLUCOSE INJECTION MG3 [Concomitant]
     Dates: start: 20210730, end: 20210731
  41. COMPOUND ELECTROLYTES AND GLUCOSE INJECTION MG3 [Concomitant]
     Dates: start: 20210910, end: 20210926
  42. PALONOSETRON HYDROCHLORIDE [Concomitant]
     Active Substance: PALONOSETRON HYDROCHLORIDE
     Dates: start: 20210731, end: 20210731
  43. APREPITANT [Concomitant]
     Active Substance: APREPITANT
     Dates: start: 20210731, end: 20210731
  44. CALCIUM GLUCONATE [Concomitant]
     Active Substance: CALCIUM GLUCONATE
     Route: 042
     Dates: start: 20211011, end: 20211011
  45. CALCIUM GLUCONATE [Concomitant]
     Active Substance: CALCIUM GLUCONATE
     Route: 042
     Dates: start: 20211013, end: 20211014
  46. COMPOUND MANNITOL [Concomitant]
     Indication: Polyuria
     Dates: start: 20210731, end: 20210731
  47. TORSEMIDE [Concomitant]
     Active Substance: TORSEMIDE
     Indication: Polyuria
     Dates: start: 20210911, end: 20210911
  48. TORSEMIDE [Concomitant]
     Active Substance: TORSEMIDE
     Dates: start: 20210913, end: 20210913
  49. TORSEMIDE [Concomitant]
     Active Substance: TORSEMIDE
     Dates: start: 20210731, end: 20210802
  50. FERROUS SUCCINATE [Concomitant]
     Active Substance: FERROUS SUCCINATE
     Indication: Anaemia
     Route: 048
     Dates: start: 20210913, end: 20210913
  51. VITAMIN C [Concomitant]
     Active Substance: ASCORBIC ACID
     Route: 042
     Dates: start: 20210913, end: 20210913
  52. VITAMIN C [Concomitant]
     Active Substance: ASCORBIC ACID
     Dates: start: 20211010, end: 20211010
  53. CALCITRIOL [Concomitant]
     Active Substance: CALCITRIOL
     Indication: Osteoporosis prophylaxis
     Dates: start: 20210916, end: 20210930
  54. LEVOTHYROXINE [Concomitant]
     Active Substance: LEVOTHYROXINE
     Dates: start: 20210924, end: 20210924
  55. ESTAZOLAM [Concomitant]
     Active Substance: ESTAZOLAM
     Indication: Insomnia
     Dates: start: 20210926, end: 20210927
  56. LACTULOSE [Concomitant]
     Active Substance: LACTULOSE
     Indication: Constipation
     Route: 048
     Dates: start: 20210923, end: 20210923
  57. DEXTROSE [Concomitant]
     Active Substance: DEXTROSE
     Dates: start: 20211010, end: 20211010
  58. DEXTROSE [Concomitant]
     Active Substance: DEXTROSE
     Dates: start: 20211012, end: 20211014
  59. ESOMEPRAZOLE SODIUM [Concomitant]
     Active Substance: ESOMEPRAZOLE SODIUM
     Dates: start: 20211008, end: 20211013
  60. INDOMETHACIN [Concomitant]
     Active Substance: INDOMETHACIN
     Indication: Analgesic therapy
     Dates: start: 20211012, end: 20211012
  61. KETOROLAC TROMETHAMINE [Concomitant]
     Active Substance: KETOROLAC TROMETHAMINE
     Indication: Analgesic therapy
     Dates: start: 20211013, end: 20211013
  62. DIAZEPAM [Concomitant]
     Active Substance: DIAZEPAM
     Dates: start: 20211013, end: 20211013

REACTIONS (1)
  - Immune-mediated myositis [Not Recovered/Not Resolved]

NARRATIVE: CASE EVENT DATE: 20210830
